FAERS Safety Report 10654209 (Version 1)
Quarter: 2014Q4

REPORT INFORMATION
  Report Type: Spontaneous
  Country: US (occurrence: None)
  Receive Date: 20141215
  Receipt Date: 20141215
  Transmission Date: 20150529
  Serious: Yes (Disabling)
  Sender: FDA-Public Use
  Company Number: None

PATIENT
  Age: 64 Year
  Sex: Male
  Weight: 92.99 kg

DRUGS (1)
  1. DULOXETINE [Suspect]
     Active Substance: DULOXETINE
     Indication: DEPRESSION
     Dosage: 2
     Route: 048
     Dates: start: 201402

REACTIONS (4)
  - Dizziness [None]
  - Withdrawal syndrome [None]
  - Diplopia [None]
  - Nausea [None]

NARRATIVE: CASE EVENT DATE: 20141102
